FAERS Safety Report 7809230-X (Version None)
Quarter: 2011Q4

REPORT INFORMATION
  Report Type: 
  Country: None (occurrence: None)
  Receive Date: 20111012
  Receipt Date: 20111004
  Transmission Date: 20120403
  Serious: Yes (Other)
  Sender: FDA-Public Use
  Company Number: SE-PFIZER INC-2010048087

PATIENT
  Age: 59 Year
  Sex: Male

DRUGS (7)
  1. VFEND [Suspect]
     Indication: BRONCHOPULMONARY ASPERGILLOSIS
     Dosage: 200 MG, UNK
     Route: 048
     Dates: start: 20070501
  2. METHOTREXATE [Concomitant]
  3. MERCAPTOPURINE [Concomitant]
  4. VFEND [Suspect]
     Dosage: 600 + 400 MG
     Route: 048
     Dates: start: 20100301
  5. AMBISOME [Concomitant]
     Dosage: 5 MG/KG
  6. VFEND [Suspect]
     Indication: CEREBRAL ASPERGILLOSIS
     Dosage: 400 MG, 2X/DAY
     Route: 048
     Dates: start: 20070501, end: 20070501
  7. CASPOFUNGIN [Concomitant]

REACTIONS (6)
  - PARAESTHESIA [None]
  - BONE PAIN [None]
  - HALLUCINATION [None]
  - TOXICITY TO VARIOUS AGENTS [None]
  - OSTEOPENIA [None]
  - POLYNEUROPATHY [None]
